FAERS Safety Report 7036169-2 (Version None)
Quarter: 2010Q4

REPORT INFORMATION
  Report Type: 
  Country: None (occurrence: None)
  Receive Date: 20101008
  Receipt Date: 20100518
  Transmission Date: 20110411
  Serious: No
  Sender: FDA-Public Use
  Company Number: US-BRISTOL-MYERS SQUIBB COMPANY-15111313

PATIENT
  Sex: Female

DRUGS (2)
  1. AVAPRO [Suspect]
  2. COREG [Interacting]

REACTIONS (1)
  - CARDIAC DISORDER [None]
